FAERS Safety Report 25393065 (Version 1)
Quarter: 2025Q2

REPORT INFORMATION
  Report Type: Report from Study
  Country: IT (occurrence: IT)
  Receive Date: 20250604
  Receipt Date: 20250604
  Transmission Date: 20250716
  Serious: Yes (Hospitalization)
  Sender: TEVA
  Company Number: None

PATIENT
  Age: 59 Year
  Sex: Female

DRUGS (4)
  1. PANTOPRAZOLE [Interacting]
     Active Substance: PANTOPRAZOLE
     Indication: Gastrointestinal disorder prophylaxis
     Dosage: 20 MG 1 TABLET/DAY
     Route: 048
     Dates: start: 202306
  2. EN [Concomitant]
     Active Substance: DELORAZEPAM
     Indication: Anxiety
     Route: 048
     Dates: start: 202307
  3. TAGRISSO [Suspect]
     Active Substance: OSIMERTINIB
     Indication: Lung adenocarcinoma stage IV
     Dosage: 80 MG 1 TABLET/DAY
     Route: 048
     Dates: start: 20230728
  4. FOLINA [Concomitant]
     Indication: Folate deficiency
     Route: 048
     Dates: start: 202306

REACTIONS (2)
  - Cardiomyopathy [Recovered/Resolved]
  - Acute pulmonary oedema [Recovered/Resolved]

NARRATIVE: CASE EVENT DATE: 20230920
